FAERS Safety Report 7183470-8 (Version None)
Quarter: 2010Q4

REPORT INFORMATION
  Report Type: 
  Country: None (occurrence: None)
  Receive Date: 20101222
  Receipt Date: 20101210
  Transmission Date: 20110411
  Serious: Yes (Hospitalization)
  Sender: FDA-Public Use
  Company Number: US-SANOFI-AVENTIS-2010SA074794

PATIENT
  Age: 75 Year
  Sex: Female
  Weight: 46.7 kg

DRUGS (6)
  1. MULTAQ [Suspect]
     Route: 048
     Dates: start: 20101020, end: 20101203
  2. SYNTHROID [Concomitant]
  3. ASPIRIN [Concomitant]
  4. METOPROLOL TARTRATE [Concomitant]
  5. ESTRADIOL [Concomitant]
  6. ALL OTHER THERAPEUTIC PRODUCTS [Concomitant]

REACTIONS (4)
  - ASTHENIA [None]
  - CHOLESTATIC LIVER INJURY [None]
  - FATIGUE [None]
  - NAUSEA [None]
